FAERS Safety Report 23302105 (Version 3)
Quarter: 2024Q2

REPORT INFORMATION
  Report Type: Spontaneous
  Country: DE (occurrence: DE)
  Receive Date: 20231215
  Receipt Date: 20240409
  Transmission Date: 20240716
  Serious: Yes (Other)
  Sender: FDA-Public Use
  Company Number: DE-AMGEN-DEUSP2023221965

PATIENT
  Age: 74 Year
  Sex: Female

DRUGS (1)
  1. PROLIA [Suspect]
     Active Substance: DENOSUMAB
     Indication: Osteoporosis
     Dosage: 60 MILLIGRAM, Q6MO
     Route: 065
     Dates: start: 2018, end: 2023

REACTIONS (12)
  - Lumbar vertebral fracture [Unknown]
  - Spinal compression fracture [Unknown]
  - Osteochondrosis [Unknown]
  - Intervertebral disc protrusion [Unknown]
  - Kyphosis [Unknown]
  - Immunoglobulins decreased [Unknown]
  - Glomerular filtration rate decreased [Unknown]
  - Blood albumin increased [Unknown]
  - Nausea [Unknown]
  - Spinal osteoarthritis [Unknown]
  - Abdominal discomfort [Unknown]
  - Accident [Unknown]

NARRATIVE: CASE EVENT DATE: 20230101
